FAERS Safety Report 5132065-6 (Version None)
Quarter: 2006Q4

REPORT INFORMATION
  Report Type: 
  Country: None (occurrence: None)
  Receive Date: 20061017
  Receipt Date: 20061006
  Transmission Date: 20070319
  Serious: Yes (Death)
  Sender: FDA-Public Use
  Company Number: 2006S1009476

PATIENT
  Age: 24 Year
  Sex: Male

DRUGS (1)
  1. CLOZAPINE [Suspect]
     Dosage: 300 MG; HS; PO
     Route: 048
     Dates: start: 20050401, end: 20061001

REACTIONS (1)
  - DEATH [None]
